FAERS Safety Report 9180890 (Version 1)
Quarter: 2013Q1

REPORT INFORMATION
  Report Type: Report from Study
  Country: CA (occurrence: CA)
  Receive Date: 20130322
  Receipt Date: 20130322
  Transmission Date: 20140127
  Serious: Yes (Hospitalization)
  Sender: FDA-Public Use
  Company Number: CA-JNJFOC-20130307705

PATIENT
  Sex: Male
  Weight: 90 kg

DRUGS (3)
  1. REMICADE [Suspect]
     Indication: COLITIS ULCERATIVE
     Route: 042
     Dates: start: 20110927, end: 20130116
  2. PREDNISONE [Concomitant]
     Route: 065
  3. PENTASA [Concomitant]
     Route: 065

REACTIONS (1)
  - Meningitis herpes [Recovering/Resolving]
